FAERS Safety Report 23175873 (Version 1)
Quarter: 2023Q4

REPORT INFORMATION
  Report Type: Report from Study
  Country: US (occurrence: US)
  Receive Date: 20231113
  Receipt Date: 20231113
  Transmission Date: 20240110
  Serious: No
  Sender: FDA-Public Use
  Company Number: US-ALXN-A202307801

PATIENT
  Age: 77 Year
  Sex: Female
  Weight: 62.132 kg

DRUGS (5)
  1. ULTOMIRIS [Suspect]
     Active Substance: RAVULIZUMAB-CWVZ
     Indication: Myasthenia gravis
     Dosage: UNK
     Route: 042
     Dates: start: 202306
  2. PREDNISONE [Concomitant]
     Active Substance: PREDNISONE
     Indication: Product used for unknown indication
     Dosage: UNK
     Route: 065
  3. MESTINON [Concomitant]
     Active Substance: PYRIDOSTIGMINE BROMIDE
     Indication: Product used for unknown indication
     Dosage: 60 MG, PRN
     Route: 048
  4. TRAMADOL HCL [Concomitant]
     Active Substance: TRAMADOL HYDROCHLORIDE
     Indication: Product used for unknown indication
     Dosage: 50 MG, PRN
     Route: 048
  5. CELLCEPT [Concomitant]
     Active Substance: MYCOPHENOLATE MOFETIL
     Indication: Product used for unknown indication
     Dosage: 500 MG, PRN
     Route: 048

REACTIONS (27)
  - Sciatica [Unknown]
  - Gait disturbance [Unknown]
  - Arthritis [Unknown]
  - Memory impairment [Not Recovered/Not Resolved]
  - Contusion [Unknown]
  - Malaise [Unknown]
  - Balance disorder [Unknown]
  - Head discomfort [Recovered/Resolved]
  - Neck pain [Unknown]
  - Urinary tract infection [Recovered/Resolved]
  - Hypersomnia [Unknown]
  - Speech disorder [Unknown]
  - Muscular weakness [Unknown]
  - Brain fog [Unknown]
  - Drug ineffective [Unknown]
  - Disturbance in attention [Unknown]
  - Vertigo [Unknown]
  - Ataxia [Unknown]
  - Paraesthesia [Unknown]
  - Heart rate abnormal [Unknown]
  - Diarrhoea [Unknown]
  - Arthralgia [Unknown]
  - Asthenia [Unknown]
  - Fatigue [Unknown]
  - Dizziness [Unknown]
  - Cystitis [Unknown]
  - Pain [Unknown]

NARRATIVE: CASE EVENT DATE: 20230722
